FAERS Safety Report 8103199-9 (Version None)
Quarter: 2012Q1

REPORT INFORMATION
  Report Type: 
  Country: None (occurrence: None)
  Receive Date: 20120201
  Receipt Date: 20120120
  Transmission Date: 20120608
  Serious: Yes (Other)
  Sender: FDA-Public Use
  Company Number: FR-COVIDIEN/TYCO HEALTHCARE/MALLINCKRODT-T201200531

PATIENT
  Sex: Female

DRUGS (1)
  1. OPTIJECT [Suspect]
     Indication: COMPUTERISED TOMOGRAM
     Dosage: 122 ML, SINGLE
     Route: 042
     Dates: start: 20111023, end: 20111023

REACTIONS (1)
  - ANAPHYLACTOID REACTION [None]
